FAERS Safety Report 25146403 (Version 2)
Quarter: 2025Q2

REPORT INFORMATION
  Report Type: Report from Study
  Country: US (occurrence: US)
  Receive Date: 20250401
  Receipt Date: 20250423
  Transmission Date: 20250716
  Serious: No
  Sender: MERCK SHARP & DOHME LLC
  Company Number: US-009507513-2261902

PATIENT
  Age: 60 Year

DRUGS (4)
  1. IVERMECTIN [Suspect]
     Active Substance: IVERMECTIN
     Indication: Clear cell renal cell carcinoma
     Route: 048
  2. IVERMECTIN [Suspect]
     Active Substance: IVERMECTIN
     Indication: Clear cell renal cell carcinoma
     Route: 048
  3. FENBENDAZOLE [Suspect]
     Active Substance: FENBENDAZOLE
     Indication: Clear cell renal cell carcinoma
  4. MELATONIN [Suspect]
     Active Substance: MELATONIN
     Indication: Clear cell renal cell carcinoma
     Dosage: DOSAGE: 300 MG

REACTIONS (2)
  - Drug effective for unapproved indication [Unknown]
  - No adverse event [Unknown]
